FAERS Safety Report 11774729 (Version 2)
Quarter: 2015Q4

REPORT INFORMATION
  Report Type: Spontaneous
  Country: US (occurrence: US)
  Receive Date: 20151124
  Receipt Date: 20151216
  Transmission Date: 20160304
  Serious: Yes (Hospitalization)
  Sender: FDA-Public Use
  Company Number: US-SUNOVION-2015SUN001019

PATIENT
  Age: 40 Year
  Sex: Female
  Weight: 104.31 kg

DRUGS (2)
  1. ZYPREXA [Concomitant]
     Active Substance: OLANZAPINE
  2. LATUDA [Suspect]
     Active Substance: LURASIDONE HYDROCHLORIDE
     Indication: BIPOLAR DISORDER
     Dosage: 60 MG, QD
     Route: 048
     Dates: start: 201510

REACTIONS (7)
  - Dyspnoea [Recovered/Resolved]
  - Nausea [Recovered/Resolved]
  - Asthma [Recovered/Resolved]
  - Anxiety [Recovered/Resolved]
  - Middle insomnia [Recovered/Resolved]
  - Vomiting [Recovered/Resolved]
  - Abnormal dreams [Recovered/Resolved]

NARRATIVE: CASE EVENT DATE: 201510
